FAERS Safety Report 7216920-9 (Version None)
Quarter: 2011Q1

REPORT INFORMATION
  Report Type: 
  Country: None (occurrence: None)
  Receive Date: 20110110
  Receipt Date: 20110106
  Transmission Date: 20110831
  Serious: Yes (Other)
  Sender: FDA-Public Use
  Company Number: JP-AMGEN-JPNCT2011000847

PATIENT

DRUGS (16)
  1. ARTIST [Concomitant]
     Route: 048
  2. IRINOTECAN HYDROCHLORIDE [Suspect]
     Route: 041
     Dates: start: 20101004
  3. U-PAN [Concomitant]
     Route: 048
  4. FLUOROURACIL [Concomitant]
     Indication: COLORECTAL CANCER
     Route: 040
     Dates: start: 20100830
  5. DEXART [Concomitant]
     Route: 042
  6. ALOXI [Concomitant]
     Route: 042
  7. IRINOTECAN HYDROCHLORIDE [Suspect]
     Indication: COLORECTAL CANCER
     Route: 041
     Dates: start: 20100830, end: 20101003
  8. BETAMETHASONE [Concomitant]
     Route: 048
  9. FLUOROURACIL [Concomitant]
     Route: 041
     Dates: start: 20100830
  10. MUCOSTA [Concomitant]
     Route: 048
  11. CORTICOSTEROIDS [Concomitant]
     Indication: PROPHYLAXIS
     Route: 065
  12. RAMELTEON [Concomitant]
     Route: 048
  13. ASPIRIN [Concomitant]
     Route: 048
  14. PANITUMUMAB [Suspect]
     Indication: COLORECTAL CANCER
     Dosage: 6 MG/KG, Q2WK
     Route: 041
     Dates: start: 20100830, end: 20100830
  15. CALCIUM LEVOFOLINATE [Concomitant]
     Indication: COLORECTAL CANCER
     Route: 041
     Dates: start: 20100830
  16. NIKORANMART [Concomitant]
     Route: 048

REACTIONS (6)
  - STOMATITIS [None]
  - NEUTROPENIA [None]
  - DERMATITIS ACNEIFORM [None]
  - DERMATITIS [None]
  - CHEILITIS [None]
  - HYPOCALCAEMIA [None]
